FAERS Safety Report 4339249-5 (Version None)
Quarter: 2004Q2

REPORT INFORMATION
  Report Type: 
  Country: None (occurrence: None)
  Receive Date: 20040414
  Receipt Date: 20040414
  Transmission Date: 20050107
  Serious: Yes (Other)
  Sender: FDA-Public Use
  Company Number: None

PATIENT
  Sex: Female
  Weight: 17.2367 kg

DRUGS (2)
  1. NIX [Suspect]
     Indication: LICE INFESTATION
     Dosage: ENOUGH TO GENNEROUSLY COVER HAIR. LEAVE IN 10 MINUTES, REPEAT 7-10 DAYS
     Dates: start: 20031210, end: 20040114
  2. MAYONASE [Concomitant]

REACTIONS (3)
  - DYSPNOEA [None]
  - FEELING ABNORMAL [None]
  - RASH PAPULAR [None]
